FAERS Safety Report 15347129 (Version 2)
Quarter: 2018Q3

REPORT INFORMATION
  Report Type: Spontaneous
  Country: SG (occurrence: SG)
  Receive Date: 20180904
  Receipt Date: 20180906
  Transmission Date: 20181010
  Serious: Yes (Other)
  Sender: FDA-Public Use
  Company Number: SG-PFIZER INC-2018352809

PATIENT
  Age: 12 Year
  Sex: Female

DRUGS (3)
  1. CEFACLOR. [Suspect]
     Active Substance: CEFACLOR
     Indication: URINARY TRACT INFECTION
     Dosage: UNK
     Dates: start: 200701
  2. AMPICILLIN [Suspect]
     Active Substance: AMPICILLIN
     Indication: URINARY TRACT INFECTION
     Dosage: UNK
     Dates: start: 200701
  3. GENTAMICIN SULFATE. [Suspect]
     Active Substance: GENTAMICIN SULFATE
     Indication: URINARY TRACT INFECTION
     Dosage: UNK
     Dates: start: 200701

REACTIONS (2)
  - Stevens-Johnson syndrome [Recovering/Resolving]
  - Acute cutaneous lupus erythematosus [Recovering/Resolving]
